FAERS Safety Report 9638866 (Version 2)
Quarter: 2013Q4

REPORT INFORMATION
  Report Type: Spontaneous
  Country: US (occurrence: US)
  Receive Date: 20131022
  Receipt Date: 20131022
  Transmission Date: 20140711
  Serious: No
  Sender: FDA-Public Use
  Company Number: US-BRISTOL-MYERS SQUIBB COMPANY-19132745

PATIENT
  Age: 70 Year
  Sex: Male
  Weight: 106.57 kg

DRUGS (3)
  1. ELIQUIS [Suspect]
     Indication: ATRIAL FIBRILLATION
     Dosage: STILL TAKING AS OF 8AUG2013
     Route: 048
     Dates: start: 20130622
  2. ZOCOR [Concomitant]
  3. VITAMIN [Concomitant]

REACTIONS (2)
  - Gastrooesophageal reflux disease [Recovered/Resolved]
  - Arthritis [Unknown]
